FAERS Safety Report 5793116-9 (Version None)
Quarter: 2008Q2

REPORT INFORMATION
  Report Type: 
  Country: None (occurrence: None)
  Receive Date: 20080627
  Receipt Date: 20080317
  Transmission Date: 20081010
  Serious: No
  Sender: FDA-Public Use
  Company Number: A0678427A

PATIENT
  Age: 74 Year
  Sex: Male

DRUGS (4)
  1. FLOVENT [Suspect]
     Indication: ASTHMA
     Dosage: 1SPR THREE TIMES PER DAY
     Route: 055
     Dates: start: 20040101
  2. COUMADIN [Concomitant]
     Dates: start: 20061006
  3. FORADIL [Concomitant]
  4. COMBIVENT [Concomitant]

REACTIONS (1)
  - DIZZINESS [None]
